FAERS Safety Report 7249950-1 (Version None)
Quarter: 2011Q1

REPORT INFORMATION
  Report Type: 
  Country: None (occurrence: None)
  Receive Date: 20110128
  Receipt Date: 20101020
  Transmission Date: 20110831
  Serious: No
  Sender: FDA-Public Use
  Company Number: A0887850A

PATIENT
  Age: 47 Year
  Sex: Female

DRUGS (2)
  1. BUPROPION HCL [Suspect]
     Indication: DEPRESSION
     Dosage: 300MG PER DAY
     Route: 048
     Dates: start: 20070101
  2. PREMARIN [Concomitant]

REACTIONS (4)
  - FATIGUE [None]
  - DEPRESSION [None]
  - WEIGHT INCREASED [None]
  - DRUG INEFFECTIVE [None]
